FAERS Safety Report 24216662 (Version 1)
Quarter: 2024Q3

REPORT INFORMATION
  Report Type: Spontaneous
  Country: PT (occurrence: PT)
  Receive Date: 20240816
  Receipt Date: 20240816
  Transmission Date: 20241016
  Serious: Yes (Other)
  Sender: AUROBINDO
  Company Number: PT-MEDINFARP-2024-0180

PATIENT
  Sex: Female

DRUGS (12)
  1. BORTEZOMIB [Suspect]
     Active Substance: BORTEZOMIB
     Indication: Plasma cell myeloma
     Dosage: UNK (VCD PROTOCOL (BORTEZOMIB, CYCLOPHOSPHAMIDE AND DEXAMETHASONE))
     Route: 065
     Dates: start: 2017
  2. MELPHALAN [Suspect]
     Active Substance: MELPHALAN
     Indication: Plasma cell myeloma
     Dosage: UNK
     Route: 065
     Dates: start: 201804
  3. LENALIDOMIDE [Suspect]
     Active Substance: LENALIDOMIDE
     Indication: Plasma cell myeloma
     Dosage: UNK
     Route: 065
     Dates: start: 201804
  4. DEXAMETHASONE [Suspect]
     Active Substance: DEXAMETHASONE
     Indication: Plasma cell myeloma
     Dosage: UNK (VCD PROTOCOL (BORTEZOMIB, CYCLOPHOSPHAMIDE AND DEXAMETHASONE))
     Route: 065
     Dates: start: 2017
  5. DEXAMETHASONE [Suspect]
     Active Substance: DEXAMETHASONE
     Dosage: UNK (STARTED KCD (CARFILZOMIB, CYCLOPHOSPHAMIDE, AND DEXAMETHASONE) IN APRIL 2020, WHICH SHE MAINTAI
     Route: 065
     Dates: start: 202004
  6. DEXAMETHASONE [Suspect]
     Active Substance: DEXAMETHASONE
     Dosage: UNK (INCREASING THE DOSE OF LENALIDOMIDE AND ADDING DEXAMETHASONE)
     Route: 065
     Dates: start: 2018
  7. DEXAMETHASONE [Suspect]
     Active Substance: DEXAMETHASONE
     Dosage: UNK (THE DPD COMBINATION (DARATUMUMAB, POMALIDOMIDE AND DEXAMETHASONE), WHICH WAS STARTED IN NOVEMBE
     Route: 065
     Dates: start: 201911
  8. CARFILZOMIB [Suspect]
     Active Substance: CARFILZOMIB
     Indication: Plasma cell myeloma
     Dosage: UNK (STARTED KCD (CARFILZOMIB, CYCLOPHOSPHAMIDE, AND DEXAMETHASONE) IN APRIL 2020, WHICH SHE MAINTAI
     Route: 065
     Dates: start: 202004
  9. POMALIDOMIDE [Suspect]
     Active Substance: POMALIDOMIDE
     Indication: Plasma cell myeloma
     Dosage: UNK (THE DPD COMBINATION (DARATUMUMAB, POMALIDOMIDE AND DEXAMETHASONE), WHICH WAS STARTED IN NOVEMBE
     Route: 065
     Dates: start: 201911
  10. DARATUMUMAB [Suspect]
     Active Substance: DARATUMUMAB
     Indication: Plasma cell myeloma
     Dosage: UNK (THE DPD COMBINATION (DARATUMUMAB, POMALIDOMIDE AND DEXAMETHASONE), WHICH WAS STARTED IN NOVEMBE
     Route: 065
     Dates: start: 201911
  11. CYCLOPHOSPHAMIDE [Suspect]
     Active Substance: CYCLOPHOSPHAMIDE
     Indication: Plasma cell myeloma
     Dosage: UNK (STARTED KCD (CARFILZOMIB, CYCLOPHOSPHAMIDE, AND DEXAMETHASONE) IN APRIL 2020, WHICH SHE MAINTAI
     Route: 065
     Dates: start: 202004
  12. CYCLOPHOSPHAMIDE [Suspect]
     Active Substance: CYCLOPHOSPHAMIDE
     Dosage: UNK (VCD PROTOCOL (BORTEZOMIB, CYCLOPHOSPHAMIDE AND DEXAMETHASONE))
     Route: 065
     Dates: start: 2017

REACTIONS (3)
  - Neuropathy peripheral [Unknown]
  - Asthenia [Unknown]
  - Hypertension [Unknown]
